FAERS Safety Report 19887726 (Version 2)
Quarter: 2021Q4

REPORT INFORMATION
  Report Type: Other
  Country: FR (occurrence: FR)
  Receive Date: 20210928
  Receipt Date: 20211014
  Transmission Date: 20220303
  Serious: Yes (Hospitalization)
  Sender: FDA-Public Use
  Company Number: FR-CELLTRION INC.-2021FR012869

PATIENT

DRUGS (22)
  1. RITUXIMAB [Suspect]
     Active Substance: RITUXIMAB
     Indication: Follicular lymphoma stage II
     Dosage: PHARMACEUTICAL DOSE FORM (FREE TEXT): 124
     Route: 041
     Dates: start: 20170126, end: 20190531
  2. RITUXIMAB [Suspect]
     Active Substance: RITUXIMAB
     Dosage: 375 MILLIGRAM/ SQ. METER, (PHARMACEUTICAL DOSE FORM (FREE TEXT): 124)
     Route: 041
     Dates: start: 20210628, end: 20210628
  3. RITUXIMAB [Suspect]
     Active Substance: RITUXIMAB
     Dosage: 670 MG (PHARMACEUTICAL DOSE FORM (FREE TEXT): 124)
     Route: 041
     Dates: start: 20210628, end: 20210628
  4. RITUXIMAB [Suspect]
     Active Substance: RITUXIMAB
     Dosage: 670 MG QD (PHARMACEUTICAL DOSE FORM (FREE TEXT): 124)
     Route: 041
     Dates: start: 20210705, end: 20210705
  5. RITUXIMAB [Suspect]
     Active Substance: RITUXIMAB
     Dosage: 670 MG QD (PHARMACEUTICAL DOSE FORM (FREE TEXT): 124)
     Route: 041
     Dates: start: 20210712, end: 20210712
  6. LENALIDOMIDE [Suspect]
     Active Substance: LENALIDOMIDE
     Indication: Follicular lymphoma stage II
     Dosage: PHARMACEUTICAL DOSE FORM (FREE TEXT): 5
     Route: 048
  7. DEXCHLORPHENIRAMINE MALEATE [Concomitant]
     Active Substance: DEXCHLORPHENIRAMINE MALEATE
     Indication: Product used for unknown indication
     Dosage: 5 MG
     Route: 065
     Dates: start: 20210712, end: 20210712
  8. COLCHICINE\DICYCLOMINE HYDROCHLORIDE [Concomitant]
     Active Substance: COLCHICINE\DICYCLOMINE HYDROCHLORIDE
     Dosage: UNK
     Route: 065
     Dates: start: 20170126, end: 20190531
  9. COLCHICINE\DICYCLOMINE HYDROCHLORIDE [Concomitant]
     Active Substance: COLCHICINE\DICYCLOMINE HYDROCHLORIDE
     Dosage: UNK
     Route: 065
     Dates: end: 20210705
  10. METHYLPREDNISOLONE [Concomitant]
     Active Substance: METHYLPREDNISOLONE
     Indication: Prophylaxis
     Dosage: 80 MG (PHARMACEUTICAL DOSE FORM (FREE TEXT): 120)
     Route: 041
     Dates: start: 20210628
  11. METHYLPREDNISOLONE [Concomitant]
     Active Substance: METHYLPREDNISOLONE
     Dosage: 80 MG (PHARMACEUTICAL DOSE FORM (FREE TEXT): 120)
     Route: 041
     Dates: start: 20210712, end: 20210719
  12. PREDNISOLONE [Concomitant]
     Active Substance: PREDNISOLONE
     Indication: Prophylaxis
     Dosage: 70 MG
     Route: 048
     Dates: start: 20210728, end: 20210729
  13. PREDNISOLONE [Concomitant]
     Active Substance: PREDNISOLONE
     Dosage: 70 MG
     Route: 048
     Dates: start: 20210629, end: 20210701
  14. PREDNISOLONE [Concomitant]
     Active Substance: PREDNISOLONE
     Dosage: 70 MG
     Route: 048
     Dates: start: 20210706, end: 20210708
  15. PREDNISOLONE [Concomitant]
     Active Substance: PREDNISOLONE
     Dosage: 70 MG
     Route: 048
     Dates: start: 20210713, end: 20210715
  16. PREDNISOLONE [Concomitant]
     Active Substance: PREDNISOLONE
     Dosage: 70 MG
     Route: 048
     Dates: start: 20210720, end: 20210722
  17. BACTRIM [Concomitant]
     Active Substance: SULFAMETHOXAZOLE\TRIMETHOPRIM
     Indication: Product used for unknown indication
     Dosage: UNK, PHARMACEUTICAL DOSE FORM (FREE TEXT): 245
     Route: 048
     Dates: start: 20210628
  18. VALACYCLOVIR HYDROCHLORIDE [Concomitant]
     Active Substance: VALACYCLOVIR HYDROCHLORIDE
     Indication: Product used for unknown indication
     Dosage: UNK, PHARMACEUTICAL DOSE FORM (FREE TEXT): 245
     Route: 048
     Dates: start: 20210628
  19. LEUCOVORIN CALCIUM [Concomitant]
     Active Substance: LEUCOVORIN CALCIUM
     Indication: Product used for unknown indication
     Dosage: UNK
     Route: 065
     Dates: start: 20210722
  20. ESOMEPRAZOLE [Concomitant]
     Active Substance: ESOMEPRAZOLE
     Indication: Product used for unknown indication
     Dosage: UNK
     Route: 065
     Dates: start: 20210722
  21. SODIUM BICARBONATE [Concomitant]
     Active Substance: SODIUM BICARBONATE
     Indication: Product used for unknown indication
     Dosage: UNK
     Route: 065
     Dates: start: 20210722
  22. ELIQUIS [Concomitant]
     Active Substance: APIXABAN
     Indication: Product used for unknown indication
     Dosage: UNK
     Dates: start: 20210729

REACTIONS (3)
  - Cytokine release syndrome [Recovered/Resolved]
  - Cytokine release syndrome [Recovered/Resolved]
  - Cytokine release syndrome [Not Recovered/Not Resolved]

NARRATIVE: CASE EVENT DATE: 20210714
